FAERS Safety Report 14630268 (Version 1)
Quarter: 2018Q1

REPORT INFORMATION
  Report Type: Spontaneous
  Country: IT (occurrence: IT)
  Receive Date: 20180313
  Receipt Date: 20180313
  Transmission Date: 20180509
  Serious: Yes (Other)
  Sender: FDA-Public Use
  Company Number: IT-AMGEN-ITASP2018019024

PATIENT
  Age: 57 Year
  Sex: Male

DRUGS (1)
  1. ROMIPLOSTIM [Suspect]
     Active Substance: ROMIPLOSTIM
     Indication: IMMUNE THROMBOCYTOPENIC PURPURA
     Dosage: 5 MUG/KG, QWK
     Route: 058
     Dates: start: 20130709, end: 20160831

REACTIONS (3)
  - Plasma cell myeloma [Unknown]
  - Marrow hyperplasia [Unknown]
  - Bone marrow reticulin fibrosis [Recovered/Resolved]

NARRATIVE: CASE EVENT DATE: 201606
